FAERS Safety Report 4809130-3 (Version None)
Quarter: 2005Q4

REPORT INFORMATION
  Report Type: 
  Country: None (occurrence: None)
  Receive Date: 20051021
  Receipt Date: 20030221
  Transmission Date: 20060501
  Serious: Yes (Other)
  Sender: FDA-Public Use
  Company Number: EWC030233990

PATIENT
  Age: 55 Year
  Sex: Male

DRUGS (7)
  1. ZYPREXA [Suspect]
     Indication: SCHIZOPHRENIA
     Dosage: 25 MG
     Dates: end: 20021005
  2. FENEMAL (PHENOBARBITAL) [Concomitant]
  3. NOZINAN (LEVOMEPROMAZINE) [Concomitant]
  4. VENTOLIN [Concomitant]
  5. TRILAFON [Concomitant]
  6. MUCOMYST [Concomitant]
  7. ACETAMINOPHEN [Concomitant]

REACTIONS (3)
  - C-REACTIVE PROTEIN INCREASED [None]
  - LEUKOPENIA [None]
  - PYREXIA [None]
